FAERS Safety Report 25399941 (Version 1)
Quarter: 2025Q2

REPORT INFORMATION
  Report Type: Other
  Country: FR (occurrence: FR)
  Receive Date: 20250605
  Receipt Date: 20250605
  Transmission Date: 20250717
  Serious: Yes (Hospitalization, Disabling, Other)
  Sender: VELOXIS PHARMACEUTICALS
  Company Number: FR-AFSSAPS-MA2025000620

PATIENT
  Age: 26 Year
  Sex: Female

DRUGS (1)
  1. TACROLIMUS [Suspect]
     Active Substance: TACROLIMUS
     Indication: Prophylaxis against transplant rejection
     Dates: start: 20241213, end: 20250521

REACTIONS (4)
  - Papilloedema [Recovered/Resolved]
  - Idiopathic intracranial hypertension [Recovered/Resolved]
  - Visual acuity reduced [Recovered/Resolved]
  - Headache [Recovered/Resolved]

NARRATIVE: CASE EVENT DATE: 20250131
